FAERS Safety Report 6614564-0 (Version None)
Quarter: 2010Q1

REPORT INFORMATION
  Report Type: 
  Country: None (occurrence: None)
  Receive Date: 20100304
  Receipt Date: 20100304
  Transmission Date: 20100710
  Serious: Yes (Disabling, Other)
  Sender: FDA-Public Use
  Company Number: None

PATIENT
  Age: 51 Year
  Sex: Male
  Weight: 72.5755 kg

DRUGS (1)
  1. METFORMIN HYDROCHLORIDE [Suspect]
     Indication: DIABETES MELLITUS
     Dosage: 1000 MG AM + PM ORAL
     Route: 048
     Dates: start: 20081001, end: 20090301

REACTIONS (6)
  - CHEST PAIN [None]
  - HYPERHIDROSIS [None]
  - NEUROPATHY PERIPHERAL [None]
  - PRURITUS [None]
  - SKIN BURNING SENSATION [None]
  - WEIGHT DECREASED [None]
